FAERS Safety Report 24287358 (Version 2)
Quarter: 2024Q4

REPORT INFORMATION
  Report Type: Spontaneous
  Country: US (occurrence: US)
  Receive Date: 20240905
  Receipt Date: 20241014
  Transmission Date: 20250115
  Serious: No
  Sender: TAKEDA
  Company Number: US-TAKEDA-2024TUS087968

PATIENT
  Sex: Female
  Weight: 48 kg

DRUGS (2)
  1. ADDERALL XR [Suspect]
     Active Substance: AMPHETAMINE ASPARTATE\AMPHETAMINE SULFATE\DEXTROAMPHETAMINE SACCHARATE\DEXTROAMPHETAMINE SULFATE
     Indication: Attention deficit hyperactivity disorder
     Dosage: 10 MILLIGRAM, QD
     Route: 065
     Dates: start: 2024
  2. GABAPENTIN [Concomitant]
     Active Substance: GABAPENTIN
     Indication: Neuralgia
     Dosage: UNK
     Route: 065

REACTIONS (4)
  - Drug hypersensitivity [Unknown]
  - Neuralgia [Unknown]
  - Product physical issue [Unknown]
  - Abdominal discomfort [Unknown]
